FAERS Safety Report 18233176 (Version 1)
Quarter: 2020Q3

REPORT INFORMATION
  Report Type: Spontaneous
  Country: US (occurrence: US)
  Receive Date: 20200904
  Receipt Date: 20200904
  Transmission Date: 20201103
  Serious: Yes (Hospitalization)
  Sender: FDA-Public Use
  Company Number: None

PATIENT
  Age: 54 Year
  Sex: Male
  Weight: 131 kg

DRUGS (1)
  1. INVOKANA [Suspect]
     Active Substance: CANAGLIFLOZIN
     Indication: TYPE 2 DIABETES MELLITUS
     Route: 048
     Dates: start: 20171117, end: 20200721

REACTIONS (6)
  - Blood glucose increased [None]
  - Vomiting [None]
  - Therapy cessation [None]
  - Diabetic ketoacidosis [None]
  - Anion gap increased [None]
  - Nausea [None]

NARRATIVE: CASE EVENT DATE: 20200721
